FAERS Safety Report 19101115 (Version 8)
Quarter: 2022Q1

REPORT INFORMATION
  Report Type: Spontaneous
  Country: US (occurrence: US)
  Receive Date: 20210407
  Receipt Date: 20220222
  Transmission Date: 20220423
  Serious: Yes (Other)
  Sender: FDA-Public Use
  Company Number: US-SANOFI-00544931

PATIENT
  Age: 31 Year
  Weight: 82.5 kg

DRUGS (4)
  1. FERRLECIT [Suspect]
     Active Substance: SODIUM FERRIC GLUCONATE COMPLEX
     Indication: Anaemia
     Dosage: 250 MG, 1X
     Dates: start: 20210331, end: 20210331
  2. LORAZEPAM [Concomitant]
     Active Substance: LORAZEPAM
     Indication: Anxiety
     Dosage: DOSE- 1MG*1 ROUTE- IV PUSH
     Route: 042
     Dates: start: 20210331, end: 20210331
  3. DIPHENHYDRAMINE [Concomitant]
     Active Substance: DIPHENHYDRAMINE
     Indication: Anaphylaxis treatment
     Dosage: DOSE- 25MG*1
     Dates: start: 20210331, end: 20210331
  4. PREDNISONE [Concomitant]
     Active Substance: PREDNISONE
     Dosage: 40MG
     Route: 042
     Dates: start: 20210331, end: 20210331

REACTIONS (5)
  - Anaphylactic reaction [Recovered/Resolved]
  - Swollen tongue [Unknown]
  - Chest discomfort [Unknown]
  - Chest pain [Unknown]
  - Dyspnoea [Unknown]

NARRATIVE: CASE EVENT DATE: 20210331
